FAERS Safety Report 4822893-6 (Version None)
Quarter: 2005Q4

REPORT INFORMATION
  Report Type: 
  Country: None (occurrence: None)
  Receive Date: 20051108
  Receipt Date: 20051031
  Transmission Date: 20060501
  Serious: Yes (Other)
  Sender: FDA-Public Use
  Company Number: PHNR2005AU01588

PATIENT
  Sex: Female

DRUGS (1)
  1. CLOZARIL [Suspect]
     Dosage: 0 - 300 MG/DAY
     Dates: start: 20040813

REACTIONS (7)
  - BODY MASS INDEX DECREASED [None]
  - COGNITIVE DISORDER [None]
  - CONSTIPATION [None]
  - MENTAL IMPAIRMENT [None]
  - NAUSEA [None]
  - SOMNOLENCE [None]
  - WEIGHT DECREASED [None]
